FAERS Safety Report 4574835-9 (Version None)
Quarter: 2005Q1

REPORT INFORMATION
  Report Type: 
  Country: None (occurrence: None)
  Receive Date: 20050208
  Receipt Date: 20040713
  Transmission Date: 20050727
  Serious: No
  Sender: FDA-Public Use
  Company Number: US-GLAXOSMITHKLINE-A0518098A

PATIENT
  Sex: Female

DRUGS (4)
  1. PAXIL CR [Suspect]
     Indication: DEPRESSION
     Dosage: 25MG PER DAY
     Route: 048
     Dates: start: 20040712
  2. ACTONEL [Concomitant]
  3. SYNTHROID [Concomitant]
  4. EYE DROPS [Concomitant]
     Indication: GLAUCOMA

REACTIONS (1)
  - DIARRHOEA [None]
